FAERS Safety Report 22219194 (Version 1)
Quarter: 2023Q2

REPORT INFORMATION
  Report Type: Spontaneous
  Country: BR (occurrence: BR)
  Receive Date: 20230417
  Receipt Date: 20230417
  Transmission Date: 20230722
  Serious: Yes (Hospitalization)
  Sender: FDA-Public Use
  Company Number: BR-ANIPHARMA-2023-BR-000043

PATIENT
  Sex: Male
  Weight: 58 kg

DRUGS (2)
  1. ARIMIDEX [Suspect]
     Active Substance: ANASTROZOLE
     Indication: Bone disorder
     Dosage: 1 DF QOD / UNK
     Route: 050
     Dates: start: 202205
  2. GENOTROPIN [Concomitant]
     Active Substance: SOMATROPIN
     Dosage: 1.7 MG DAILY
     Route: 065
     Dates: start: 202205

REACTIONS (6)
  - Blood creatine phosphokinase increased [Recovered/Resolved]
  - Blood phosphorus increased [Recovered/Resolved]
  - Aspartate aminotransferase increased [Recovered/Resolved]
  - Alanine aminotransferase increased [Recovered/Resolved]
  - Proteinuria [Recovered/Resolved]
  - Off label use [Not Recovered/Not Resolved]

NARRATIVE: CASE EVENT DATE: 20220501
